FAERS Safety Report 12113567 (Version 1)
Quarter: 2016Q1

REPORT INFORMATION
  Report Type: Spontaneous
  Country: US (occurrence: None)
  Receive Date: 20160224
  Receipt Date: 20160224
  Transmission Date: 20160526
  Serious: No
  Sender: FDA-Public Use
  Company Number: None

PATIENT
  Age: 42 Year
  Sex: Female
  Weight: 89.81 kg

DRUGS (1)
  1. PAXIL [Suspect]
     Active Substance: PAROXETINE HYDROCHLORIDE
     Dosage: 10 YR AGO. OK AFTER SWITCHING TO BRAND
     Route: 048

REACTIONS (3)
  - Anxiety [None]
  - Fear [None]
  - Drug ineffective [None]

NARRATIVE: CASE EVENT DATE: 2006
